FAERS Safety Report 13394584 (Version 1)
Quarter: 2017Q2

REPORT INFORMATION
  Report Type: Spontaneous
  Country: JP (occurrence: JP)
  Receive Date: 20170403
  Receipt Date: 20170403
  Transmission Date: 20170830
  Serious: Yes (Other)
  Sender: FDA-Public Use
  Company Number: JP-SUN PHARMACEUTICAL INDUSTRIES LTD-2017RR-137140

PATIENT
  Age: 68 Year
  Sex: Male

DRUGS (12)
  1. CALCIUM FOLINAT [Suspect]
     Active Substance: LEUCOVORIN CALCIUM
     Indication: METASTASES TO LIVER
     Dosage: ON DAY 1: OVER 2 HR: ADMINISTERED AT INTERVALS OF 2 WEEKS
     Route: 065
  2. FLUOROURACIL. [Suspect]
     Active Substance: FLUOROURACIL
     Indication: METASTASES TO LIVER
     Dosage: BOLUS
     Route: 065
  3. CETUXIMAB. [Suspect]
     Active Substance: CETUXIMAB
     Indication: METASTASES TO LIVER
     Dosage: OVER 2 HR:AT INTERVAL OF 1 WEEK
     Route: 065
  4. OXALIPLATIN. [Suspect]
     Active Substance: OXALIPLATIN
     Indication: METASTASES TO LIVER
     Dosage: ON DAY 1: OVER 2 HR: ADMINISTERED AT INTERVALS OF 2 WEEKS
     Route: 065
  5. FLUOROURACIL. [Suspect]
     Active Substance: FLUOROURACIL
     Indication: RECTAL ADENOCARCINOMA
     Dosage: BOLUS
     Route: 065
  6. FLUOROURACIL. [Suspect]
     Active Substance: FLUOROURACIL
     Dosage: ADMINISTERED CONTINUOUSLY OVER 46 HR
     Route: 065
  7. CETUXIMAB. [Suspect]
     Active Substance: CETUXIMAB
     Indication: RECTAL ADENOCARCINOMA
     Dosage: OVER 2 HR:AT INTERVAL OF 1 WEEK
     Route: 065
  8. CETUXIMAB. [Suspect]
     Active Substance: CETUXIMAB
     Dosage: OVER 1 HR:AT INTERVAL OF 1 WEEK
     Route: 065
  9. CALCIUM FOLINAT [Suspect]
     Active Substance: LEUCOVORIN CALCIUM
     Indication: RECTAL ADENOCARCINOMA
     Dosage: ON DAY 1: OVER 2 HR: ADMINISTERED AT INTERVALS OF 2 WEEKS
     Route: 065
  10. OXALIPLATIN. [Suspect]
     Active Substance: OXALIPLATIN
     Indication: RECTAL ADENOCARCINOMA
     Dosage: ON DAY 1: OVER 2 HR: ADMINISTERED AT INTERVALS OF 2 WEEKS
     Route: 065
  11. FLUOROURACIL. [Suspect]
     Active Substance: FLUOROURACIL
     Dosage: ADMINISTERED CONTINUOUSLY OVER 46 HR
     Route: 065
  12. CETUXIMAB. [Suspect]
     Active Substance: CETUXIMAB
     Dosage: OVER 1 HR:AT INTERVAL OF 1 WEEK
     Route: 065

REACTIONS (5)
  - Thrombocytopenia [Unknown]
  - Dermatitis acneiform [Unknown]
  - Stomatitis [Unknown]
  - Paronychia [Unknown]
  - Neuropathy peripheral [Unknown]
